FAERS Safety Report 23843497 (Version 1)
Quarter: 2024Q2

REPORT INFORMATION
  Report Type: Spontaneous
  Country: PT (occurrence: PT)
  Receive Date: 20240510
  Receipt Date: 20240510
  Transmission Date: 20240716
  Serious: Yes (Life-Threatening)
  Sender: FDA-Public Use
  Company Number: None

PATIENT
  Age: 54 Year
  Sex: Female
  Weight: 70 kg

DRUGS (5)
  1. ROCURONIUM BROMIDE [Suspect]
     Active Substance: ROCURONIUM BROMIDE
     Indication: Surgery
     Dosage: SINGLE DOSE?FORM OF ADMIN: SOLUTION FOR INJECTION OR INFUSION
     Route: 042
     Dates: start: 20240423, end: 20240423
  2. PROPOFOL [Concomitant]
     Active Substance: PROPOFOL
     Indication: Product used for unknown indication
     Dosage: FORM OF ADMIN: EMULSION FOR INJECTION OR INFUSION
     Dates: start: 20240423, end: 20240423
  3. Cefazolina  Hikma  IV [Cefazolin] [Concomitant]
     Indication: Induction of anaesthesia
     Dosage: FORM OF ADMIN: POWDER FOR SOLUTION FOR INJECTION
     Dates: start: 20240423, end: 20240423
  4. Fentanyl Labesfal [Fentanyl, citrate] [Concomitant]
     Indication: Induction of anaesthesia
     Dosage: FORM OF ADMIN:  SOLUTION FOR INJECTION
     Dates: start: 20240423, end: 20240423
  5. SEVOFLURANO BAXTER [Concomitant]
     Indication: Induction of anaesthesia
     Dosage: LIQUID FOR VAPORIZATION INHALATION
     Dates: start: 20240423, end: 20240423

REACTIONS (1)
  - Anaphylactic shock [Recovered/Resolved]

NARRATIVE: CASE EVENT DATE: 20240423
